FAERS Safety Report 19864891 (Version 7)
Quarter: 2022Q1

REPORT INFORMATION
  Report Type: Spontaneous
  Country: FR (occurrence: FR)
  Receive Date: 20210921
  Receipt Date: 20220124
  Transmission Date: 20220424
  Serious: Yes (Death, Other)
  Sender: FDA-Public Use
  Company Number: FR-SA-SAC20210908000331

PATIENT
  Age: 52 Year
  Sex: Male
  Weight: 44 kg

DRUGS (1)
  1. FABRAZYME [Suspect]
     Active Substance: AGALSIDASE BETA
     Indication: Fabry^s disease
     Dosage: UNK
     Dates: start: 2007

REACTIONS (6)
  - Creutzfeldt-Jakob disease [Fatal]
  - Magnetic resonance imaging abnormal [Fatal]
  - Vertigo [Fatal]
  - Dyskinesia [Fatal]
  - Ataxia [Fatal]
  - Muscular weakness [Fatal]

NARRATIVE: CASE EVENT DATE: 20210401
